FAERS Safety Report 11987907 (Version 3)
Quarter: 2016Q1

REPORT INFORMATION
  Report Type: Report from Study
  Country: US (occurrence: US)
  Receive Date: 20160202
  Receipt Date: 20160317
  Transmission Date: 20160526
  Serious: No
  Sender: FDA-Public Use
  Company Number: PHEH2016US001782

PATIENT
  Age: 36 Year
  Sex: Female
  Weight: 81.63 kg

DRUGS (2)
  1. GILENYA [Suspect]
     Active Substance: FINGOLIMOD HYDROCHLORIDE
     Indication: MULTIPLE SCLEROSIS
     Dosage: 0.5 MG, QD
     Route: 048
     Dates: start: 20140521
  2. AUGMENTIN [Concomitant]
     Active Substance: AMOXICILLIN\CLAVULANATE POTASSIUM
     Indication: PRODUCT USED FOR UNKNOWN INDICATION
     Dosage: 875 MG, UNK
     Route: 065

REACTIONS (11)
  - Speech disorder [Unknown]
  - Fatigue [Unknown]
  - Dysgraphia [Unknown]
  - Dysphonia [Unknown]
  - Gait disturbance [Unknown]
  - Malaise [Unknown]
  - Ear infection [Unknown]
  - Bronchitis [Unknown]
  - Memory impairment [Unknown]
  - Cognitive disorder [Unknown]
  - Sinusitis [Unknown]

NARRATIVE: CASE EVENT DATE: 20160119
